FAERS Safety Report 23433777 (Version 1)
Quarter: 2024Q1

REPORT INFORMATION
  Report Type: Spontaneous
  Country: US (occurrence: None)
  Receive Date: 20240123
  Receipt Date: 20240123
  Transmission Date: 20240410
  Serious: Yes (Hospitalization)
  Sender: FDA-Public Use
  Company Number: 2024A017583

PATIENT
  Age: 68 Year
  Sex: Female

DRUGS (4)
  1. BREZTRI [Suspect]
     Active Substance: BUDESONIDE\FORMOTEROL\GLYCOPYRROLATE
     Dosage: 2UG/INHAL EVERY 12 HOURS
     Route: 055
     Dates: start: 20231208, end: 20231208
  2. PREDNISONE [Concomitant]
     Active Substance: PREDNISONE
  3. ALVESCO [Concomitant]
     Active Substance: CICLESONIDE
  4. ZITHROMAX [Concomitant]
     Active Substance: AZITHROMYCIN DIHYDRATE

REACTIONS (1)
  - Tremor [Recovered/Resolved]

NARRATIVE: CASE EVENT DATE: 20231208
